FAERS Safety Report 4775060-9 (Version None)
Quarter: 2005Q3

REPORT INFORMATION
  Report Type: 
  Country: None (occurrence: None)
  Receive Date: 20050920
  Receipt Date: 20031218
  Transmission Date: 20060218
  Serious: Yes (Other)
  Sender: FDA-Public Use
  Company Number: 2003125745

PATIENT
  Age: 50 Year
  Sex: Male
  Weight: 90 kg

DRUGS (2)
  1. BLINDED THERAPY (BLINDED THERAPY) [Suspect]
     Indication: CEREBROVASCULAR DISORDER
     Dosage: ORAL
     Route: 048
     Dates: start: 20000208
  2. ACETYLSALICYLIC ACID SRT [Concomitant]

REACTIONS (5)
  - ARTHROPATHY [None]
  - ASEPTIC NECROSIS BONE [None]
  - DIFFICULTY IN WALKING [None]
  - OSTEOPENIA [None]
  - PAIN [None]
